FAERS Safety Report 12374171 (Version 1)
Quarter: 2016Q2

REPORT INFORMATION
  Report Type: Spontaneous
  Country: US (occurrence: US)
  Receive Date: 20160517
  Receipt Date: 20160517
  Transmission Date: 20160815
  Serious: Yes (Other)
  Sender: FDA-Public Use
  Company Number: US-FERRINGPH-2016FE00825

PATIENT
  Age: 33 Year
  Sex: Female
  Weight: 113 kg

DRUGS (1)
  1. CERVIDIL [Suspect]
     Active Substance: DINOPROSTONE
     Indication: INDUCTION OF CERVIX RIPENING
     Dosage: UNK
     Route: 067
     Dates: start: 20151008, end: 20151009

REACTIONS (2)
  - Foetal death [Recovered/Resolved]
  - Uterine rupture [Recovered/Resolved]

NARRATIVE: CASE EVENT DATE: 20151008
